FAERS Safety Report 7610801-4 (Version None)
Quarter: 2011Q3

REPORT INFORMATION
  Report Type: 
  Country: None (occurrence: None)
  Receive Date: 20110715
  Receipt Date: 20110704
  Transmission Date: 20111222
  Serious: Yes (Hospitalization, Other)
  Sender: FDA-Public Use
  Company Number: PHHO2011AR11438

PATIENT
  Sex: Male
  Weight: 60 kg

DRUGS (9)
  1. BLINDED QVA149 [Suspect]
     Dosage: DOUBLE BLIND
     Dates: start: 20101206, end: 20110705
  2. BLINDED NVA237 [Suspect]
     Dosage: DOUBLE BLIND
     Dates: start: 20110709
  3. BLINDED QVA149 [Suspect]
     Dosage: DOUBLE BLIND
     Dates: start: 20110709
  4. BLINDED TIOTROPIUM [Suspect]
     Dosage: DOUBLE BLIND
     Dates: start: 20110709
  5. LORAZEPAM [Concomitant]
     Indication: INSOMNIA
     Dosage: 2.5 MG, QD
     Route: 048
     Dates: start: 20080101
  6. BLINDED NO TREATMENT RECEIVED [Suspect]
     Dosage: DOUBLE BLIND
     Dates: start: 20101206, end: 20110705
  7. BLINDED TIOTROPIUM [Suspect]
     Dosage: DOUBLE BLIND
     Dates: start: 20101206, end: 20110705
  8. BLINDED NO TREATMENT RECEIVED [Suspect]
     Dosage: DOUBLE BLIND
     Dates: start: 20110709
  9. BLINDED NVA237 [Suspect]
     Dosage: DOUBLE BLIND
     Dates: start: 20101206, end: 20110705

REACTIONS (4)
  - CONDITION AGGRAVATED [None]
  - CHRONIC OBSTRUCTIVE PULMONARY DISEASE [None]
  - SERRATIA TEST POSITIVE [None]
  - BENIGN PROSTATIC HYPERPLASIA [None]
